FAERS Safety Report 16669914 (Version 3)
Quarter: 2019Q3

REPORT INFORMATION
  Report Type: Spontaneous
  Country: US (occurrence: US)
  Receive Date: 20190805
  Receipt Date: 20190903
  Transmission Date: 20191004
  Serious: No
  Sender: FDA-Public Use
  Company Number: PHEH2019US031838

PATIENT
  Sex: Female

DRUGS (1)
  1. AFINITOR [Suspect]
     Active Substance: EVEROLIMUS
     Indication: ENDOMETRIAL NEOPLASM
     Dosage: 10 MG, QD
     Route: 048
     Dates: start: 201807

REACTIONS (2)
  - Somnolence [Unknown]
  - Fatigue [Unknown]
